FAERS Safety Report 8368840-4 (Version None)
Quarter: 2012Q2

REPORT INFORMATION
  Report Type: 
  Country: None (occurrence: None)
  Receive Date: 20120518
  Receipt Date: 20120514
  Transmission Date: 20120825
  Serious: Yes (Disabling)
  Sender: FDA-Public Use
  Company Number: GB-ACCORD-013492

PATIENT
  Age: 54 Year
  Sex: Male
  Weight: 77.9 kg

DRUGS (4)
  1. ASPIRIN [Concomitant]
     Dosage: ONGOING.
     Route: 048
  2. AZULFIDINE [Concomitant]
     Indication: VASCULITIS
     Route: 048
     Dates: end: 20111202
  3. PREDNISOLONE [Concomitant]
     Indication: VASCULITIS
     Dosage: ONGOING.
     Route: 048
  4. MYCOPHENOLATE MOFETIL [Suspect]
     Indication: VASCULITIS
     Route: 048
     Dates: start: 20120309, end: 20120406

REACTIONS (5)
  - CHEST DISCOMFORT [None]
  - HYPERHIDROSIS [None]
  - HEADACHE [None]
  - LOSS OF CONSCIOUSNESS [None]
  - OFF LABEL USE [None]
